FAERS Safety Report 7451529-3 (Version None)
Quarter: 2011Q2

REPORT INFORMATION
  Report Type: 
  Country: None (occurrence: None)
  Receive Date: 20110502
  Receipt Date: 20110419
  Transmission Date: 20111010
  Serious: Yes (Other)
  Sender: FDA-Public Use
  Company Number: PHHY2011BE33361

PATIENT
  Age: 20 Year
  Sex: Male

DRUGS (1)
  1. PAMIDRONATE DISODIUM [Suspect]
     Indication: COMPLEX REGIONAL PAIN SYNDROME

REACTIONS (4)
  - X-RAY ABNORMAL [None]
  - BONE DISORDER [None]
  - ROAD TRAFFIC ACCIDENT [None]
  - BACK PAIN [None]
